FAERS Safety Report 8726886 (Version 3)
Quarter: 2013Q1

REPORT INFORMATION
  Report Type: Spontaneous
  Country: US (occurrence: US)
  Receive Date: 20120816
  Receipt Date: 20130329
  Transmission Date: 20140127
  Serious: Yes (Hospitalization)
  Sender: FDA-Public Use
  Company Number: US-B.I. PHARMACEUTICALS,INC./RIDGEFIELD-2012-BP-18721BP

PATIENT
  Age: 82 Year
  Sex: Female
  Weight: 113.4 kg

DRUGS (6)
  1. PRADAXA [Suspect]
     Indication: ANTICOAGULANT THERAPY
     Dosage: 150 MG
     Dates: start: 20110912, end: 20120127
  2. OXYBUTYNIN [Concomitant]
     Dosage: 15 MG
  3. LISINOPRIL [Concomitant]
     Dosage: 20 MG
  4. BUPROPRION [Concomitant]
     Dosage: 100 MG
  5. LASIX [Concomitant]
     Dosage: 40 MG
  6. MELOXICAM [Concomitant]
     Dosage: 15 MG

REACTIONS (3)
  - Gastrointestinal haemorrhage [Unknown]
  - Haematuria [Unknown]
  - Vaginal haemorrhage [Unknown]
